FAERS Safety Report 9291282 (Version 2)
Quarter: 2013Q2

REPORT INFORMATION
  Report Type: Spontaneous
  Country: US (occurrence: US)
  Receive Date: 20130515
  Receipt Date: 20130528
  Transmission Date: 20140414
  Serious: Yes (Death, Hospitalization, Other)
  Sender: FDA-Public Use
  Company Number: US-B.I. PHARMACEUTICALS,INC./RIDGEFIELD-2013-BI-13343BP

PATIENT
  Age: 7 Decade
  Sex: Male

DRUGS (2)
  1. PRADAXA [Suspect]
     Indication: CEREBROVASCULAR ACCIDENT PROPHYLAXIS
  2. PRADAXA [Suspect]
     Indication: ATRIAL FIBRILLATION

REACTIONS (7)
  - Haemothorax [Fatal]
  - Procedural haemorrhage [Fatal]
  - Lung neoplasm malignant [Unknown]
  - Hypoxia [Unknown]
  - Hypotension [Unknown]
  - Atrial fibrillation [Unknown]
  - Ventricular tachycardia [Unknown]
